FAERS Safety Report 7914403-1 (Version None)
Quarter: 2011Q4

REPORT INFORMATION
  Report Type: 
  Country: None (occurrence: None)
  Receive Date: 20111115
  Receipt Date: 20111102
  Transmission Date: 20120403
  Serious: Yes (Hospitalization)
  Sender: FDA-Public Use
  Company Number: US-ELI_LILLY_AND_COMPANY-US201003001539

PATIENT
  Sex: Female

DRUGS (14)
  1. BONIVA [Concomitant]
  2. FORTEO [Suspect]
     Dosage: UNK
  3. FORTEO [Suspect]
     Dosage: 20 UG, QD
  4. PLAVIX [Concomitant]
  5. PRAVACHOL [Concomitant]
  6. NORVASC [Concomitant]
  7. FORTEO [Suspect]
     Dosage: 20 UG, DAILY (1/D)
  8. FORTEO [Suspect]
     Dosage: 20 UG, QD
  9. ASCORBIC ACID [Concomitant]
  10. DIAZEPAM [Concomitant]
  11. CITRACAL [Concomitant]
  12. CENTRUM SILVER [Concomitant]
  13. FORTEO [Suspect]
     Indication: OSTEOPOROSIS
     Dosage: 20 UG, DAILY (1/D)
     Dates: start: 20100126
  14. TOPROL-XL [Concomitant]

REACTIONS (17)
  - URETHRAL PROLAPSE [None]
  - SLEEP DISORDER [None]
  - BLADDER DISORDER [None]
  - PRURITUS [None]
  - ADVERSE DRUG REACTION [None]
  - PAIN IN EXTREMITY [None]
  - ERYTHEMA [None]
  - DIZZINESS POSTURAL [None]
  - ARTHRALGIA [None]
  - BLADDER PROLAPSE [None]
  - UTERINE PROLAPSE [None]
  - RASH [None]
  - NAUSEA [None]
  - PROCTALGIA [None]
  - FATIGUE [None]
  - FEAR [None]
  - MUSCLE SPASMS [None]
